FAERS Safety Report 17116377 (Version 3)
Quarter: 2020Q4

REPORT INFORMATION
  Report Type: Report from Study
  Country: US (occurrence: US)
  Receive Date: 20191205
  Receipt Date: 20201229
  Transmission Date: 20210113
  Serious: Yes (Hospitalization)
  Sender: FDA-Public Use
  Company Number: US-PFIZER INC-2019514986

PATIENT
  Age: 39 Year
  Sex: Male
  Weight: 96.6 kg

DRUGS (7)
  1. CEFEPIME [Concomitant]
     Active Substance: CEFEPIME HYDROCHLORIDE
     Dosage: 50 ML, SINGLE (ONCE IVPB)
     Route: 042
     Dates: start: 20191124, end: 20191124
  2. DAUNORUBICIN [Suspect]
     Active Substance: DAUNORUBICIN
     Indication: ACUTE MYELOID LEUKAEMIA
     Dosage: 141 MG, INDUCTION, DAILY BY CONTINUOUS INFUSION
     Route: 041
     Dates: start: 20190709, end: 20190711
  3. PIPERACILLIN AND TAZOBACTAM [Concomitant]
     Active Substance: PIPERACILLIN SODIUM\TAZOBACTAM SODIUM
     Indication: ANTIBIOTIC THERAPY
     Dosage: 3.375 G, EVERY 8 HOURS
     Route: 042
     Dates: start: 20191124, end: 20191203
  4. CYTARABINE. [Suspect]
     Active Substance: CYTARABINE
     Indication: ACUTE MYELOID LEUKAEMIA
     Dosage: 6660 MG, CONSOLIDATION WITH SINGLE-AGENT CYTARABINE, CONSOLIDATION CYCLE 3, OVER 3 HOURS TWICE DAILY
     Route: 042
     Dates: start: 20191104, end: 20191108
  5. HYDROCORTISONE. [Concomitant]
     Active Substance: HYDROCORTISONE
     Dosage: RECTAL CREAM, APPLICATION EVERY 6 HOURS
  6. GLASDEGIB [Suspect]
     Active Substance: GLASDEGIB
     Indication: ACUTE MYELOID LEUKAEMIA
     Dosage: ONCE DAILY CONTINUOUS
     Route: 048
     Dates: start: 20190709
  7. CYTARABINE. [Suspect]
     Active Substance: CYTARABINE
     Indication: ACUTE MYELOID LEUKAEMIA
     Dosage: 235 MG, INDUCTION, DAILY BY COTINUOUS INFUSION
     Route: 041
     Dates: start: 20190709, end: 20190715

REACTIONS (2)
  - Proctalgia [Recovered/Resolved]
  - Sepsis [Recovered/Resolved]

NARRATIVE: CASE EVENT DATE: 20191124
